FAERS Safety Report 4644510-0 (Version None)
Quarter: 2005Q2

REPORT INFORMATION
  Report Type: 
  Country: None (occurrence: None)
  Receive Date: 20050425
  Receipt Date: 20050425
  Transmission Date: 20051028
  Serious: Yes (Other)
  Sender: FDA-Public Use
  Company Number: None

PATIENT
  Age: 47 Year
  Sex: Male
  Weight: 92.9874 kg

DRUGS (1)
  1. ZICAM [Suspect]

REACTIONS (2)
  - ANOSMIA [None]
  - APPLICATION SITE IRRITATION [None]
